FAERS Safety Report 9482083 (Version 1)
Quarter: 2013Q3

REPORT INFORMATION
  Report Type: Report from Study
  Country: CO (occurrence: CO)
  Receive Date: 20130828
  Receipt Date: 20130828
  Transmission Date: 20140515
  Serious: Yes (Hospitalization)
  Sender: FDA-Public Use
  Company Number: PHHY2013CO092321

PATIENT
  Age: 4 Year
  Sex: Female
  Weight: 16.3 kg

DRUGS (5)
  1. EVEROLIMUS [Suspect]
     Indication: TUBEROUS SCLEROSIS
  2. LEVOTHYROXINE [Concomitant]
     Indication: HYPOTHYROIDISM
     Dosage: 25 MG, UNK
     Dates: start: 20120901
  3. SABRIL [Concomitant]
     Indication: EPILEPSY
     Dosage: 90 UNK, UNK
     Dates: start: 20130619
  4. VALPROIC ACID [Concomitant]
     Indication: EPILEPSY
     Dosage: 200 MG,
     Dates: start: 20090601
  5. SALBUTAMOL [Concomitant]
     Indication: ASTHMA
     Dosage: 100 MG,
     Dates: start: 20110619

REACTIONS (4)
  - Automatism [Unknown]
  - Disturbance in attention [Unknown]
  - Infantile spasms [Unknown]
  - Pneumonia viral [Recovered/Resolved]
